FAERS Safety Report 5056935-2 (Version None)
Quarter: 2006Q2

REPORT INFORMATION
  Report Type: 
  Country: None (occurrence: None)
  Receive Date: 20060621
  Receipt Date: 20051214
  Transmission Date: 20061013
  Serious: Yes (Hospitalization)
  Sender: FDA-Public Use
  Company Number: PIR# 0512020

PATIENT
  Age: 88 Year
  Sex: Female

DRUGS (1)
  1. PROCALAMINE [Suspect]
     Indication: PNEUMONIA
     Dosage: I.V.
     Route: 042

REACTIONS (2)
  - INFUSION SITE REACTION [None]
  - INJECTION SITE REACTION [None]
